FAERS Safety Report 26175787 (Version 1)
Quarter: 2025Q4

REPORT INFORMATION
  Report Type: Spontaneous
  Country: US (occurrence: US)
  Receive Date: 20251218
  Receipt Date: 20251218
  Transmission Date: 20260117
  Serious: Yes (Other)
  Sender: LENZ Therapeutics
  Company Number: US-LENZ THERAPEUTICS, INC.-2025LTS000280

PATIENT
  Age: 61 Year
  Sex: Female

DRUGS (1)
  1. VIZZ [Suspect]
     Active Substance: ACECLIDINE HYDROCHLORIDE
     Indication: Presbyopia
     Dosage: 0.4 MILLILITER, QD
     Route: 047
     Dates: end: 20251206

REACTIONS (3)
  - Vitreous detachment [Recovered/Resolved]
  - Vitreous floaters [Recovering/Resolving]
  - Photopsia [Recovered/Resolved]

NARRATIVE: CASE EVENT DATE: 20251205
